FAERS Safety Report 4925346-X (Version None)
Quarter: 2006Q1

REPORT INFORMATION
  Report Type: 
  Country: None (occurrence: None)
  Receive Date: 20060228
  Receipt Date: 20050204
  Transmission Date: 20060701
  Serious: No
  Sender: FDA-Public Use
  Company Number: US-GLAXOSMITHKLINE-A0543957A

PATIENT
  Age: 11 Year
  Sex: Male

DRUGS (2)
  1. LAMICTAL [Suspect]
     Dosage: 25MG THREE TIMES PER DAY
     Route: 048
     Dates: start: 20040101, end: 20050129
  2. RISPERDAL [Concomitant]

REACTIONS (5)
  - PRURITUS [None]
  - SKIN BURNING SENSATION [None]
  - SKIN PAPILLOMA [None]
  - STAPHYLOCOCCAL INFECTION [None]
  - URTICARIA [None]
